FAERS Safety Report 22902755 (Version 3)
Quarter: 2023Q4

REPORT INFORMATION
  Report Type: Spontaneous
  Country: US (occurrence: US)
  Receive Date: 20230904
  Receipt Date: 20231005
  Transmission Date: 20240109
  Serious: No
  Sender: FDA-Public Use
  Company Number: US-PFIZER INC-202300290105

PATIENT
  Age: 12 Year
  Sex: Male
  Weight: 37.42 kg

DRUGS (2)
  1. GENOTROPIN [Suspect]
     Active Substance: SOMATROPIN
     Dosage: 1.8 MG
     Dates: start: 2023
  2. ERGOCALCIFEROL [Concomitant]
     Active Substance: ERGOCALCIFEROL
     Dosage: UNK

REACTIONS (3)
  - Injection site pain [Unknown]
  - Tearfulness [Unknown]
  - Device temperature issue [Unknown]

NARRATIVE: CASE EVENT DATE: 20230101
